FAERS Safety Report 5624051-4 (Version None)
Quarter: 2008Q1

REPORT INFORMATION
  Report Type: 
  Country: None (occurrence: None)
  Receive Date: 20080213
  Receipt Date: 20061207
  Transmission Date: 20080703
  Serious: No
  Sender: FDA-Public Use
  Company Number: US-KINGPHARMUSA00001-K200601561

PATIENT

DRUGS (1)
  1. EPIPEN [Suspect]
     Dosage: UNK, SINGLE
     Dates: start: 20061207, end: 20061207

REACTIONS (2)
  - ACCIDENTAL EXPOSURE [None]
  - INJECTION SITE PALLOR [None]
